FAERS Safety Report 6641615-X (Version None)
Quarter: 2010Q1

REPORT INFORMATION
  Report Type: 
  Country: None (occurrence: None)
  Receive Date: 20100317
  Receipt Date: 20100317
  Transmission Date: 20100710
  Serious: Yes (Hospitalization)
  Sender: FDA-Public Use
  Company Number: None

PATIENT
  Sex: Male
  Weight: 101 kg

DRUGS (1)
  1. TEMOZOLOMIDE [Suspect]
     Dosage: 1280 MG
     Dates: end: 20100310

REACTIONS (1)
  - WOUND INFECTION [None]
